FAERS Safety Report 9222087 (Version 2)
Quarter: 2013Q2

REPORT INFORMATION
  Report Type: Report from Study
  Country: BR (occurrence: BR)
  Receive Date: 20130410
  Receipt Date: 20130617
  Transmission Date: 20140414
  Serious: Yes (Other)
  Sender: FDA-Public Use
  Company Number: PHHY2013BR034411

PATIENT
  Sex: Female
  Weight: 42 kg

DRUGS (12)
  1. ACLASTA [Suspect]
     Indication: OSTEOPOROSIS
     Dosage: UNK UKN, EVERY YEAR
     Route: 042
     Dates: start: 2010
  2. ACLASTA [Suspect]
     Dosage: UNK UKN, EVERY YEAR
     Route: 042
  3. ACLASTA [Suspect]
     Dosage: UNK UKN, EVERY YEAR
     Route: 042
  4. ACLASTA [Suspect]
     Dosage: UNK UKN, EVERY YEAR
     Route: 042
  5. INSULIN [Concomitant]
  6. ONGLYZA [Concomitant]
  7. NOVORAPID [Concomitant]
  8. DEPURA [Concomitant]
  9. SELOZOK [Concomitant]
  10. SOMALGIN [Concomitant]
  11. LIPITOR [Concomitant]
  12. OSTEONUTRI [Concomitant]

REACTIONS (8)
  - Ankle fracture [Not Recovered/Not Resolved]
  - Lower limb fracture [Not Recovered/Not Resolved]
  - Fall [Unknown]
  - Hypoglycaemia [Not Recovered/Not Resolved]
  - Spinal pain [Not Recovered/Not Resolved]
  - Muscle spasms [Not Recovered/Not Resolved]
  - Asthenia [Not Recovered/Not Resolved]
  - Pain in extremity [Not Recovered/Not Resolved]
